FAERS Safety Report 17620800 (Version 1)
Quarter: 2020Q2

REPORT INFORMATION
  Report Type: Report from Study
  Country: US (occurrence: US)
  Receive Date: 20200403
  Receipt Date: 20200403
  Transmission Date: 20200713
  Serious: Yes (Other)
  Sender: FDA-Public Use
  Company Number: NVSC2020US089832

PATIENT
  Sex: Female

DRUGS (1)
  1. ENTRESTO [Suspect]
     Active Substance: SACUBITRIL\VALSARTAN
     Indication: CARDIAC FAILURE
     Dosage: UNK
     Route: 048

REACTIONS (9)
  - Renal disorder [Unknown]
  - Confusional state [Unknown]
  - Diverticulum [Unknown]
  - Blood pressure abnormal [Unknown]
  - Amnesia [Unknown]
  - Diabetes mellitus [Unknown]
  - Cardiac failure congestive [Unknown]
  - Diverticulitis [Unknown]
  - Gout [Unknown]
